FAERS Safety Report 15297078 (Version 1)
Quarter: 2018Q4

REPORT INFORMATION
  Report Type: Spontaneous
  Country: FR (occurrence: FR)
  Receive Date: 20180820
  Receipt Date: 20180820
  Transmission Date: 20190204
  Serious: Yes (Hospitalization)
  Sender: FDA-Public Use
  Company Number: FR-TEVA-2018-FR-944666

PATIENT
  Age: 34 Year
  Sex: Male
  Weight: 104 kg

DRUGS (6)
  1. CYTARABINE SANDOZ 100 MG/ML, SOLUTION INJECTABLE [Suspect]
     Active Substance: CYTARABINE
     Indication: ACUTE LYMPHOCYTIC LEUKAEMIA
     Route: 024
     Dates: start: 20180329, end: 20180412
  2. CYTARABINE SANDOZ 100 MG/ML, SOLUTION INJECTABLE [Suspect]
     Active Substance: CYTARABINE
     Route: 042
     Dates: start: 20180427, end: 20180428
  3. METHOTREXATE MYLAN [Suspect]
     Active Substance: METHOTREXATE SODIUM
     Indication: ACUTE LYMPHOCYTIC LEUKAEMIA
     Dosage: 1000 MG/M2 DAILY;
     Route: 042
     Dates: start: 20180426, end: 20180426
  4. METHOTREXATE MYLAN [Suspect]
     Active Substance: METHOTREXATE SODIUM
     Route: 024
     Dates: start: 20180329, end: 20180412
  5. VINCRISTINE TEVA 0,1 POUR CENT (1 MG/1 ML), SOLUTION INJECTABLE (I.V.) [Suspect]
     Active Substance: VINCRISTINE
     Indication: ACUTE LYMPHOCYTIC LEUKAEMIA
     Route: 042
     Dates: start: 20180329, end: 20180419
  6. DEPO-MEDROL [Suspect]
     Active Substance: METHYLPREDNISOLONE ACETATE
     Indication: ACUTE LYMPHOCYTIC LEUKAEMIA
     Route: 024
     Dates: start: 20180329, end: 20180412

REACTIONS (3)
  - Disturbance in attention [Recovered/Resolved]
  - Headache [Recovered/Resolved]
  - Aphasia [Recovered/Resolved]

NARRATIVE: CASE EVENT DATE: 20180429
